FAERS Safety Report 9742621 (Version 3)
Quarter: 2015Q3

REPORT INFORMATION
  Report Type: Spontaneous
  Country: US (occurrence: US)
  Receive Date: 20131210
  Receipt Date: 20150804
  Transmission Date: 20151125
  Serious: No
  Sender: FDA-Public Use
  Company Number: US-GILEAD-2009-0024694

PATIENT
  Age: 60 Year
  Sex: Female
  Weight: 65.77 kg

DRUGS (9)
  1. FENOFIBRATE. [Concomitant]
     Active Substance: FENOFIBRATE
  2. DIOVAN HCT [Concomitant]
     Active Substance: HYDROCHLOROTHIAZIDE\VALSARTAN
  3. LIPITOR [Concomitant]
     Active Substance: ATORVASTATIN CALCIUM
  4. TRENTAL [Concomitant]
     Active Substance: PENTOXIFYLLINE
  5. FOLIC ACID. [Concomitant]
     Active Substance: FOLIC ACID
  6. ASPIRIN. [Concomitant]
     Active Substance: ASPIRIN
  7. CALCIUM [Concomitant]
     Active Substance: CALCIUM
  8. LETAIRIS [Suspect]
     Active Substance: AMBRISENTAN
     Indication: PULMONARY ARTERIAL HYPERTENSION
     Route: 048
     Dates: start: 20090918
  9. A-Z MULTIVITAMINS [Concomitant]

REACTIONS (2)
  - Hypoaesthesia [Unknown]
  - Musculoskeletal stiffness [Unknown]
